FAERS Safety Report 9848049 (Version 1)
Quarter: 2013Q4

REPORT INFORMATION
  Report Type: Spontaneous
  Country: US (occurrence: None)
  Receive Date: 20131223
  Receipt Date: 20131223
  Transmission Date: 20140711
  Serious: No
  Sender: FDA-Public Use
  Company Number: CABO-13003460

PATIENT
  Age: 74 Year
  Sex: Male
  Weight: 75 kg

DRUGS (3)
  1. COMETRIQ [Suspect]
     Indication: PROSTATE CANCER
     Route: 048
     Dates: start: 20130502, end: 20130604
  2. ALFASON (HYDROCORTISONE BUTYRATE) [Concomitant]
  3. HYDROCODONE (HYDROCODONE) [Concomitant]

REACTIONS (2)
  - Prostatic specific antigen increased [None]
  - Off label use [None]
